FAERS Safety Report 18073889 (Version 1)
Quarter: 2020Q3

REPORT INFORMATION
  Report Type: Report from Study
  Country: DE (occurrence: DE)
  Receive Date: 20200727
  Receipt Date: 20200727
  Transmission Date: 20201103
  Serious: Yes (Hospitalization)
  Sender: FDA-Public Use
  Company Number: DE-BAUSCH-BL-2020-020714

PATIENT
  Age: 46 Year
  Sex: Female

DRUGS (10)
  1. HYDROCORTISONE COMPARATOR [Suspect]
     Active Substance: HYDROCORTISONE
     Dosage: P 20/ HC 10?15 MILLIGRAM
     Route: 048
     Dates: start: 2015
  2. HYDROCORTISONE COMPARATOR [Suspect]
     Active Substance: HYDROCORTISONE
     Route: 048
     Dates: start: 20151019, end: 20151021
  3. FLUDROCORTISONE [Concomitant]
     Active Substance: FLUDROCORTISONE
     Indication: ADDISON^S DISEASE
     Route: 048
     Dates: start: 2011
  4. SELENIUM [Concomitant]
     Active Substance: SELENIUM
     Indication: ADDISON^S DISEASE
     Route: 048
     Dates: start: 2012
  5. VITAMIN D [Concomitant]
     Active Substance: VITAMIN D NOS
     Indication: VITAMIN D DEFICIENCY
     Dosage: DAILY DOSE: 1000 IU INTERNATIONAL UNIT(S) EVERY DAY
     Route: 048
     Dates: start: 2012
  6. CHOLECALCIFEROL [Concomitant]
     Active Substance: CHOLECALCIFEROL
     Indication: VITAMIN D DEFICIENCY
  7. HYDROCORTISONE COMPARATOR [Suspect]
     Active Substance: HYDROCORTISONE
     Indication: ADRENAL INSUFFICIENCY
     Route: 048
     Dates: start: 2015
  8. HYDROCORTISONE. [Suspect]
     Active Substance: HYDROCORTISONE
     Indication: ADRENAL INSUFFICIENCY
     Dosage: P 20, HC 15, MILLIGRAM, 3X/DAY:TID
     Route: 048
     Dates: start: 20160206
  9. HYDROCORTISONE. [Suspect]
     Active Substance: HYDROCORTISONE
     Route: 048
     Dates: start: 2015, end: 20160212
  10. HYDROCORTISONE COMPARATOR [Suspect]
     Active Substance: HYDROCORTISONE
     Indication: ADRENAL INSUFFICIENCY
     Route: 048
     Dates: start: 2015

REACTIONS (1)
  - Adrenocortical insufficiency acute [Recovered/Resolved]

NARRATIVE: CASE EVENT DATE: 20151017
